FAERS Safety Report 19990785 (Version 2)
Quarter: 2023Q1

REPORT INFORMATION
  Report Type: Other
  Country: GB (occurrence: GB)
  Receive Date: 20211025
  Receipt Date: 20230110
  Transmission Date: 20230418
  Serious: Yes (Other)
  Sender: FDA-Public Use
  Company Number: None

PATIENT
  Age: 74 Year
  Sex: Female

DRUGS (4)
  1. MIRABEGRON [Suspect]
     Active Substance: MIRABEGRON
     Indication: Bladder pain
     Route: 048
     Dates: start: 20211006, end: 20211013
  2. MIRABEGRON [Suspect]
     Active Substance: MIRABEGRON
     Indication: Pollakiuria
  3. ASPIRIN [Concomitant]
     Active Substance: ASPIRIN
     Indication: Ill-defined disorder
     Dosage: UNK UNK, UNKNOWN FREQ.
     Route: 065
  4. OMEPRAZOLE [Concomitant]
     Active Substance: OMEPRAZOLE
     Indication: Ill-defined disorder
     Dosage: UNK UNK, UNKNOWN FREQ.
     Route: 065

REACTIONS (5)
  - Genital pain [Recovered/Resolved]
  - Bladder pain [Recovering/Resolving]
  - Condition aggravated [Recovering/Resolving]
  - Pollakiuria [Unknown]
  - Off label use [Unknown]

NARRATIVE: CASE EVENT DATE: 20211006
